FAERS Safety Report 8664772 (Version 2)
Quarter: 2012Q4

REPORT INFORMATION
  Report Type: 
  Country: US (occurrence: US)
  Receive Date: 20120713
  Receipt Date: 20121026
  Transmission Date: 20130627
  Serious: Yes (Other)
  Sender: FDA-Public Use
  Company Number: US-US-EMD SERONO, INC.-7146097

PATIENT
  Sex: Male
  Weight: 52 kg

DRUGS (3)
  1. SAIZEN [(SOMATROPIN (RDNA ORIGIN) FOR INJECTION)] [Suspect]
     Indication: BODY HEIGHT BELOW NORMAL
     Dates: start: 201106
  2. LETROZOLE [Concomitant]
     Indication: GROWTH RETARDATION
     Dates: start: 201206
  3. MULTIVITAMINS [Concomitant]
     Indication: PRODUCT USED FOR UNKNOWN INDICATION
     Dates: start: 201206

REACTIONS (7)
  - Cardiac flutter [Unknown]
  - Presyncope [Unknown]
  - Dehydration [Unknown]
  - Syncope [Recovered/Resolved]
  - Viral infection [Recovered/Resolved]
  - Chest pain [Unknown]
  - Arthralgia [Unknown]
